FAERS Safety Report 7862364-6 (Version None)
Quarter: 2011Q4

REPORT INFORMATION
  Report Type: 
  Country: None (occurrence: None)
  Receive Date: 20111027
  Receipt Date: 20101108
  Transmission Date: 20120403
  Serious: No
  Sender: FDA-Public Use
  Company Number: US-AMGEN-USASP2010004088

PATIENT
  Age: 63 Year
  Sex: Female

DRUGS (11)
  1. ASPIRIN [Concomitant]
     Dosage: 81 MG, UNK
  2. ENBREL [Suspect]
     Indication: PRODUCT USED FOR UNKNOWN INDICATION
     Dosage: 50 MG, 2 TIMES/WK
     Route: 058
  3. FEXOFENADINE [Concomitant]
     Dosage: 180 MG, UNK
  4. VANOS [Concomitant]
     Dosage: 0.1 UNK, UNK
     Route: 061
  5. ENBREL [Suspect]
     Dosage: 50 MG, QWK
  6. BUMEX [Concomitant]
     Dosage: 0.5 MG, UNK
  7. SIMVASTATIN [Concomitant]
     Dosage: 10 MG, UNK
  8. VESICARE                           /01735902/ [Concomitant]
     Dosage: 5 MG, UNK
  9. TRIAMCINOLON                       /00031901/ [Concomitant]
     Dosage: 0.1 %, UNK
     Route: 061
  10. HYDROXYZINE PAM [Concomitant]
     Dosage: 100 MG, UNK
  11. MULTIVITAMIN                       /00097801/ [Concomitant]

REACTIONS (1)
  - NASOPHARYNGITIS [None]
